FAERS Safety Report 5755445-4 (Version None)
Quarter: 2008Q2

REPORT INFORMATION
  Report Type: 
  Country: None (occurrence: None)
  Receive Date: 20080602
  Receipt Date: 20080527
  Transmission Date: 20081010
  Serious: Yes (Death)
  Sender: FDA-Public Use
  Company Number: GB-ASTRAZENECA-2008GB00867

PATIENT
  Age: 27781 Day
  Sex: Female
  Weight: 57 kg

DRUGS (7)
  1. QUETIAPINE FUMARATE [Suspect]
     Indication: HYPOMANIA
     Route: 048
     Dates: start: 20070510, end: 20070511
  2. QUETIAPINE FUMARATE [Suspect]
     Dosage: 25MG ONCE DAILY AND 50MG ONCE DAILY
     Route: 048
     Dates: start: 20070511, end: 20070514
  3. QUETIAPINE FUMARATE [Suspect]
     Route: 048
     Dates: start: 20070514, end: 20070704
  4. QUETIAPINE FUMARATE [Suspect]
     Dosage: 25MG MANE 50MG NOCTE
     Route: 048
     Dates: start: 20070704
  5. ATORVASTATIN CALCIUM [Concomitant]
     Indication: HYPERCHOLESTEROLAEMIA
  6. METFORMIN HCL [Concomitant]
     Indication: TYPE 2 DIABETES MELLITUS
     Route: 048
  7. CORACTEN (NIFEDIPINE) SR [Concomitant]
     Indication: HYPERTENSION

REACTIONS (10)
  - ABDOMINAL PAIN [None]
  - BACK PAIN [None]
  - BLOOD GLUCOSE INCREASED [None]
  - BLOOD UREA INCREASED [None]
  - COGNITIVE DISORDER [None]
  - DEEP VEIN THROMBOSIS [None]
  - DIARRHOEA [None]
  - PULMONARY EMBOLISM [None]
  - SUDDEN DEATH [None]
  - VOMITING [None]
